FAERS Safety Report 7601565-9 (Version None)
Quarter: 2011Q3

REPORT INFORMATION
  Report Type: 
  Country: None (occurrence: None)
  Receive Date: 20110711
  Receipt Date: 20110628
  Transmission Date: 20111222
  Serious: Yes (Other)
  Sender: FDA-Public Use
  Company Number: PHHY2011US56317

PATIENT

DRUGS (2)
  1. FANAPT [Suspect]
  2. CLOZAPINE [Suspect]

REACTIONS (2)
  - RENAL DISORDER [None]
  - BLADDER DISORDER [None]
